FAERS Safety Report 5199806-3 (Version None)
Quarter: 2006Q4

REPORT INFORMATION
  Report Type: 
  Country: None (occurrence: None)
  Receive Date: 20061229
  Receipt Date: 20061219
  Transmission Date: 20070319
  Serious: Yes (Hospitalization)
  Sender: FDA-Public Use
  Company Number: 2006SP008663

PATIENT
  Age: 73 Year
  Sex: Male
  Weight: 69 kg

DRUGS (6)
  1. TEMODAL [Suspect]
     Indication: GLIOBLASTOMA MULTIFORME
     Dosage: 140 MG; QD; PO
     Route: 048
     Dates: start: 20060814, end: 20061001
  2. RADIATION THERAPY (THERAPEUTIC RADIOPHARMACEUTICALS) [Suspect]
     Indication: GLIOBLASTOMA MULTIFORME
     Dates: start: 20060814, end: 20060925
  3. DECADRON [Suspect]
     Indication: DRUG USE FOR UNKNOWN INDICATION
     Dosage: 2 MG;BID;
  4. DILANTIN (CON.) [Concomitant]
  5. STEMETIL (PREV.) [Concomitant]
  6. ZANTAC (CON.) [Concomitant]

REACTIONS (5)
  - ABASIA [None]
  - ARTHRALGIA [None]
  - CELLULITIS [None]
  - PAIN IN EXTREMITY [None]
  - PSEUDOMONAS INFECTION [None]
